FAERS Safety Report 5317812-2 (Version None)
Quarter: 2007Q2

REPORT INFORMATION
  Report Type: 
  Country: None (occurrence: None)
  Receive Date: 20070507
  Receipt Date: 20070424
  Transmission Date: 20071010
  Serious: Yes (Other)
  Sender: FDA-Public Use
  Company Number: GB-PFIZER INC-2007033507

PATIENT
  Sex: Male

DRUGS (7)
  1. CARDURA [Suspect]
     Dosage: DAILY DOSE:4MG-FREQ:DAILY
  2. CARDURA [Suspect]
     Dosage: DAILY DOSE:8MG-FREQ:DAILY
  3. CARDURA [Suspect]
     Dosage: DAILY DOSE:12MG-FREQ:DAILY
  4. ACETYLSALICYLIC ACID SRT [Concomitant]
  5. OMEPRAZOLE [Concomitant]
  6. LIPITOR [Concomitant]
  7. AMLODIPINE [Concomitant]

REACTIONS (5)
  - ABASIA [None]
  - DRY MOUTH [None]
  - DYSPNOEA [None]
  - FATIGUE [None]
  - NASAL CONGESTION [None]
